FAERS Safety Report 8986325 (Version 1)
Quarter: 2012Q4

REPORT INFORMATION
  Report Type: Spontaneous
  Country: US (occurrence: None)
  Receive Date: 20121219
  Receipt Date: 20121219
  Transmission Date: 20130627
  Serious: Yes (Other)
  Sender: FDA-Public Use
  Company Number: None

PATIENT
  Age: 30 Year
  Sex: Female
  Weight: 124.74 kg

DRUGS (4)
  1. ESCITALOPRAM OXALATE [Suspect]
     Dosage: 10 mg QD PO
     Route: 048
     Dates: start: 20120310, end: 20120317
  2. SEROQUEL [Concomitant]
  3. VISTARIL [Concomitant]
  4. ATIVAN [Concomitant]

REACTIONS (3)
  - Nausea [None]
  - Vomiting [None]
  - Depression [None]
